FAERS Safety Report 5040043-0 (Version None)
Quarter: 2006Q2

REPORT INFORMATION
  Report Type: 
  Country: None (occurrence: None)
  Receive Date: 20060630
  Receipt Date: 20060620
  Transmission Date: 20061013
  Serious: Yes (Death)
  Sender: FDA-Public Use
  Company Number: US-JNJFOC-20040600971

PATIENT
  Sex: Female
  Weight: 158.76 kg

DRUGS (43)
  1. RISPERDAL [Suspect]
     Route: 065
  2. RISPERDAL [Suspect]
     Route: 065
  3. RISPERDAL [Suspect]
     Route: 065
  4. RISPERDAL [Suspect]
     Route: 065
  5. RISPERDAL [Suspect]
     Dosage: 2 MG THREE TIMES DAILY AND 4 MG AT BEDTIME
     Route: 065
  6. RISPERDAL [Suspect]
     Route: 065
  7. RISPERDAL [Suspect]
     Route: 065
  8. RISPERDAL [Suspect]
     Dosage: 3 MG AT BEDTIME
     Route: 065
  9. RISPERDAL [Suspect]
     Dosage: 3 MG AT BEDTIME
     Route: 065
  10. RISPERDAL [Suspect]
     Route: 065
  11. RISPERDAL [Suspect]
     Dosage: 1 MG IN AM, 2 MG AT BEDTIME
     Route: 065
  12. RISPERDAL [Suspect]
     Route: 065
  13. RISPERDAL [Suspect]
     Route: 065
  14. RISPERDAL [Suspect]
     Route: 065
  15. RISPERDAL [Suspect]
     Indication: SCHIZOPHRENIA
     Dosage: AT BEDTIME
     Route: 065
  16. TOPIRAMATE [Concomitant]
  17. TOPIRAMATE [Concomitant]
  18. TOPIRAMATE [Concomitant]
  19. AUGMENTIN '125' [Concomitant]
  20. ACTIFED [Concomitant]
     Dosage: PATIENT HAD ONE DOSE ON 21-MAY-02
  21. IMPROMEN [Concomitant]
  22. IMPROMEN [Concomitant]
  23. IMPROMEN [Concomitant]
     Dosage: AT BEDTIME
  24. IMPROMEN [Concomitant]
     Dosage: AT BEDTIME
  25. COGENTIN [Concomitant]
  26. COGENTIN [Concomitant]
  27. COGENTIN [Concomitant]
  28. ATIVAN [Concomitant]
  29. ATIVAN [Concomitant]
  30. ATIVAN [Concomitant]
  31. ZYPREXA [Concomitant]
     Dosage: 1 TO 2 DOSES DAILY, AS NEEDED
  32. ZYPREXA [Concomitant]
     Dosage: 1 TO 2 DOSES DAILY, AS NEEDED
  33. DEPAKOTE [Concomitant]
  34. ZOLOFT [Concomitant]
  35. TOFRANIL [Concomitant]
  36. TOFRANIL [Concomitant]
     Dosage: AT BEDTIME
  37. ARTANE [Concomitant]
  38. LUVOX [Concomitant]
     Dosage: IN AM
  39. LUVOX [Concomitant]
     Dosage: AT BEDTIME
  40. DITROPAN [Concomitant]
  41. DETROL [Concomitant]
  42. DETROL [Concomitant]
  43. TRIHEXYPHENIDYL HCL [Concomitant]

REACTIONS (48)
  - ABNORMAL BEHAVIOUR [None]
  - AGGRESSION [None]
  - AGITATION [None]
  - AMENORRHOEA [None]
  - ANGER [None]
  - BLOOD PRESSURE DECREASED [None]
  - BRONCHITIS ACUTE [None]
  - CARDIOMYOPATHY [None]
  - CONSTIPATION [None]
  - CONTUSION [None]
  - COUGH [None]
  - DELUSION [None]
  - DELUSION OF REFERENCE [None]
  - DYSKINESIA [None]
  - ENURESIS [None]
  - FAECAL INCONTINENCE [None]
  - FALL [None]
  - GENITOURINARY TRACT INFECTION [None]
  - HALLUCINATION, AUDITORY [None]
  - HYPERPHAGIA [None]
  - INAPPROPRIATE AFFECT [None]
  - INCONTINENCE [None]
  - INSOMNIA [None]
  - IRRITABILITY [None]
  - LOGORRHOEA [None]
  - MUSCULOSKELETAL CHEST PAIN [None]
  - NAUSEA [None]
  - OPPOSITIONAL DEFIANT DISORDER [None]
  - PAIN IN EXTREMITY [None]
  - PARANOIA [None]
  - PERSECUTORY DELUSION [None]
  - PHARYNGITIS [None]
  - POOR PERSONAL HYGIENE [None]
  - PROTEUS INFECTION [None]
  - PULMONARY OEDEMA [None]
  - RESTLESSNESS [None]
  - ROAD TRAFFIC ACCIDENT [None]
  - SINUSITIS [None]
  - SOLILOQUY [None]
  - SPUTUM DISCOLOURED [None]
  - TARDIVE DYSKINESIA [None]
  - TENOSYNOVITIS [None]
  - UPPER RESPIRATORY TRACT INFECTION [None]
  - URINARY INCONTINENCE [None]
  - URINARY TRACT INFECTION [None]
  - VOMITING [None]
  - WEIGHT DECREASED [None]
  - WEIGHT INCREASED [None]
